FAERS Safety Report 25353937 (Version 1)
Quarter: 2025Q2

REPORT INFORMATION
  Report Type: Spontaneous
  Country: US (occurrence: US)
  Receive Date: 20250523
  Receipt Date: 20250523
  Transmission Date: 20250717
  Serious: No
  Sender: Kenvue
  Company Number: US-KENVUE-20250505836

PATIENT

DRUGS (2)
  1. WOMENS ROGAINE UNSCENTED [Suspect]
     Active Substance: MINOXIDIL
     Indication: Product used for unknown indication
     Route: 061
  2. WOMENS ROGAINE UNSCENTED [Suspect]
     Active Substance: MINOXIDIL
     Route: 065

REACTIONS (4)
  - Alopecia [Unknown]
  - Wrong technique in product usage process [Unknown]
  - Underdose [Unknown]
  - Expired product administered [Unknown]

NARRATIVE: CASE EVENT DATE: 20250401
